FAERS Safety Report 4871327-4 (Version None)
Quarter: 2005Q4

REPORT INFORMATION
  Report Type: 
  Country: None (occurrence: None)
  Receive Date: 20051229
  Receipt Date: 20051215
  Transmission Date: 20060501
  Serious: Yes (Hospitalization, Other)
  Sender: FDA-Public Use
  Company Number: 200513007BWH

PATIENT
  Age: 41 Year
  Sex: Female

DRUGS (1)
  1. CIPRO [Suspect]
     Dosage: 500 MG, ORAL
     Route: 048

REACTIONS (3)
  - DYSPNOEA [None]
  - RASH [None]
  - RHABDOMYOLYSIS [None]
